FAERS Safety Report 6072000-X (Version None)
Quarter: 2009Q1

REPORT INFORMATION
  Report Type: 
  Country: None (occurrence: None)
  Receive Date: 20090210
  Receipt Date: 20090203
  Transmission Date: 20090719
  Serious: Yes (Other)
  Sender: FDA-Public Use
  Company Number: US-BIOGENIDEC-2009BI003877

PATIENT
  Sex: Female

DRUGS (1)
  1. AVONEX [Suspect]
     Indication: MULTIPLE SCLEROSIS
     Route: 030
     Dates: start: 20081017

REACTIONS (3)
  - HEPATIC FUNCTION ABNORMAL [None]
  - OROPHARYNGEAL PAIN [None]
  - PANCREATIC DUCT STENOSIS [None]
